FAERS Safety Report 16380979 (Version 1)
Quarter: 2019Q2

REPORT INFORMATION
  Report Type: Spontaneous
  Country: KR (occurrence: KR)
  Receive Date: 20190602
  Receipt Date: 20190602
  Transmission Date: 20190711
  Serious: Yes (Other)
  Sender: FDA-Public Use
  Company Number: PHHY2019KR125083

PATIENT
  Age: 53 Year
  Sex: Female

DRUGS (8)
  1. VIGAMOX [Suspect]
     Active Substance: MOXIFLOXACIN HYDROCHLORIDE
     Indication: INFECTIVE KERATITIS
     Dosage: EVERY 1 HOUR (EVERY 10 MIN FOR FIRST 1 HOUR)
     Route: 061
  2. GENTAMICIN. [Suspect]
     Active Substance: GENTAMICIN
     Indication: INFECTIVE KERATITIS
     Route: 061
  3. MOXIFLOXACIN. [Suspect]
     Active Substance: MOXIFLOXACIN
     Indication: INFECTIVE KERATITIS
     Dosage: 400 MG, QD
     Route: 048
  4. MOMETASONE FUROATE. [Suspect]
     Active Substance: MOMETASONE FUROATE
     Indication: INFECTIVE KERATITIS
     Dosage: 1 MG, UNK
     Route: 061
  5. CEFTAZIDIME. [Suspect]
     Active Substance: CEFTAZIDIME
     Indication: INFECTIVE KERATITIS
     Route: 061
  6. CYCLOPENTOLATE. [Suspect]
     Active Substance: CYCLOPENTOLATE
     Indication: INFECTIVE KERATITIS
     Dosage: UNK UNK, TID
     Route: 061
  7. DOXYCYCLINE. [Suspect]
     Active Substance: DOXYCYCLINE
     Indication: INFECTIVE KERATITIS
     Dosage: 100 MG, BID
     Route: 048
  8. VORICONAZOLE. [Suspect]
     Active Substance: VORICONAZOLE
     Indication: INFECTIVE KERATITIS
     Dosage: EVERY 1 HOUR (EVERY 10 MIN FOR FIRST 1 HOUR)
     Route: 061

REACTIONS (4)
  - Therapy non-responder [Unknown]
  - Detached Descemet^s membrane [Recovered/Resolved with Sequelae]
  - Corneal infiltrates [Recovering/Resolving]
  - Hypopyon [Recovering/Resolving]
